FAERS Safety Report 21191352 (Version 1)
Quarter: 2022Q3

REPORT INFORMATION
  Report Type: Spontaneous
  Country: US (occurrence: US)
  Receive Date: 20220809
  Receipt Date: 20220809
  Transmission Date: 20221027
  Serious: No
  Sender: FDA-Public Use
  Company Number: US-PFIZER INC-202201042004

PATIENT
  Sex: Male

DRUGS (1)
  1. LYRICA [Suspect]
     Active Substance: PREGABALIN
     Indication: Herpes zoster
     Dosage: UNK

REACTIONS (4)
  - Off label use [Unknown]
  - Intentional product misuse [Unknown]
  - Feeling abnormal [Unknown]
  - Paranoia [Unknown]
